FAERS Safety Report 12979647 (Version 1)
Quarter: 2016Q4

REPORT INFORMATION
  Report Type: Spontaneous
  Country: US (occurrence: US)
  Receive Date: 20161128
  Receipt Date: 20161128
  Transmission Date: 20170207
  Serious: No
  Sender: FDA-Public Use
  Company Number: US-ELI_LILLY_AND_COMPANY-US201611009180

PATIENT
  Age: 60 Year

DRUGS (10)
  1. ZOLOFT [Concomitant]
     Active Substance: SERTRALINE HYDROCHLORIDE
     Dosage: UNK, UNKNOWN
     Route: 065
  2. TRICOR                             /00090101/ [Concomitant]
     Active Substance: ADENOSINE
     Dosage: UNK, UNKNOWN
     Route: 065
  3. HUMULIN R [Suspect]
     Active Substance: INSULIN HUMAN
     Indication: TYPE 2 DIABETES MELLITUS
     Dosage: 150 U, TID
     Route: 065
     Dates: start: 201001
  4. FISH OIL [Concomitant]
     Active Substance: FISH OIL
     Dosage: UNK, UNKNOWN
     Route: 065
  5. VITAMIN D [Concomitant]
     Active Substance: CHOLECALCIFEROL
     Dosage: UNK, UNKNOWN
     Route: 065
  6. HUMEX                              /00048102/ [Concomitant]
     Active Substance: DEXTROMETHORPHAN HYDROBROMIDE
     Dosage: UNK, UNKNOWN
     Route: 065
  7. ASPIRIN                            /00002701/ [Concomitant]
     Active Substance: ASPIRIN
     Dosage: UNK, UNKNOWN
     Route: 065
  8. ZETIA [Concomitant]
     Active Substance: EZETIMIBE
     Dosage: UNK, UNKNOWN
     Route: 065
  9. FLONASE                            /00908302/ [Concomitant]
     Active Substance: MOMETASONE FUROATE
     Dosage: UNK, UNKNOWN
     Route: 065
  10. ALLEGRA [Concomitant]
     Active Substance: FEXOFENADINE HYDROCHLORIDE
     Dosage: UNK, UNKNOWN
     Route: 065

REACTIONS (7)
  - Nose deformity [Unknown]
  - Skin disorder [Unknown]
  - Tongue disorder [Unknown]
  - Dysphonia [Unknown]
  - Dysmorphism [Unknown]
  - Acanthosis nigricans [Unknown]
  - Skin hypertrophy [Unknown]

NARRATIVE: CASE EVENT DATE: 201103
